FAERS Safety Report 9613542 (Version 1)
Quarter: 2013Q4

REPORT INFORMATION
  Report Type: Spontaneous
  Country: GB (occurrence: None)
  Receive Date: 20131008
  Receipt Date: 20131008
  Transmission Date: 20140711
  Serious: Yes (Other)
  Sender: FDA-Public Use
  Company Number: AUR-APL-2013-08104

PATIENT
  Age: 65 Year
  Sex: Female
  Weight: 69.85 kg

DRUGS (7)
  1. AMOXICILLIN [Suspect]
     Indication: PRODUCT USED FOR UNKNOWN INDICATION
     Dates: start: 20130820
  2. ASPIRIN (ACETYLSALICYLIC ACID) [Concomitant]
  3. ATORVASTATIN (ATORVASTATIN) [Concomitant]
  4. BENDROFLUMETHIAZIDE (BENDROFLUMETHIAZIDE) [Concomitant]
  5. BISOPROLOL (BISOPROLOL) [Concomitant]
  6. FLUTICASONE (FLUTICASONE) [Concomitant]
  7. TRAMADOL (TRAMADOL) [Concomitant]

REACTIONS (1)
  - Swelling face [None]
